FAERS Safety Report 20607640 (Version 1)
Quarter: 2022Q1

REPORT INFORMATION
  Report Type: Spontaneous
  Country: US (occurrence: None)
  Receive Date: 20220317
  Receipt Date: 20220317
  Transmission Date: 20220423
  Serious: Yes (Death)
  Sender: FDA-Public Use
  Company Number: None

PATIENT
  Sex: Female

DRUGS (16)
  1. CIMZIA [Suspect]
     Active Substance: CERTOLIZUMAB PEGOL
     Indication: Rheumatoid arthritis
     Dosage: OTHER QUANTITY : 2 X 200 MG/ML;?
     Route: 058
     Dates: start: 20150611, end: 20220220
  2. ALBUTEROL [Concomitant]
  3. BENZTROPINE [Concomitant]
     Active Substance: BENZTROPINE
  4. BUPROPION [Concomitant]
     Active Substance: BUPROPION
  5. CHLORPROMAZ [Concomitant]
  6. CLONAZEPAM [Concomitant]
     Active Substance: CLONAZEPAM
  7. CLOZARIL [Concomitant]
     Active Substance: CLOZAPINE
  8. COGENTIN [Concomitant]
     Active Substance: BENZTROPINE MESYLATE
  9. FENTANYL [Concomitant]
  10. MULTI TAB FOR HER [Concomitant]
  11. PERCOCET [Concomitant]
     Active Substance: ACETAMINOPHEN\OXYCODONE HYDROCHLORIDE
  12. PLAQUENIL [Concomitant]
     Active Substance: HYDROXYCHLOROQUINE SULFATE
  13. PRILOSEC [Concomitant]
  14. SYNTHROID [Concomitant]
     Active Substance: LEVOTHYROXINE SODIUM
  15. TOPAMAX [Concomitant]
     Active Substance: TOPIRAMATE
  16. TOPIRAMATE [Concomitant]
     Active Substance: TOPIRAMATE

REACTIONS (1)
  - Death [None]
